FAERS Safety Report 9307422 (Version 1)
Quarter: 2013Q2

REPORT INFORMATION
  Report Type: Spontaneous
  Country: CN (occurrence: CN)
  Receive Date: 20130524
  Receipt Date: 20130524
  Transmission Date: 20140414
  Serious: Yes (Hospitalization)
  Sender: FDA-Public Use
  Company Number: CN-JNJFOC-20130509014

PATIENT
  Age: 24 Year
  Sex: Female

DRUGS (1)
  1. INVEGA SUSTENNA [Suspect]
     Indication: MENTAL DISORDER
     Route: 030
     Dates: start: 20120928, end: 20121128

REACTIONS (1)
  - Tuberculosis [Not Recovered/Not Resolved]
